FAERS Safety Report 18310007 (Version 1)
Quarter: 2020Q3

REPORT INFORMATION
  Report Type: Spontaneous
  Country: MX (occurrence: MX)
  Receive Date: 20200924
  Receipt Date: 20200924
  Transmission Date: 20201103
  Serious: Yes (Other)
  Sender: FDA-Public Use
  Company Number: MX-009507513-2008MEX007947

PATIENT
  Sex: Male
  Weight: 74 kg

DRUGS (2)
  1. KEYTRUDA [Suspect]
     Active Substance: PEMBROLIZUMAB
     Indication: RENAL CANCER
     Dosage: EVERY MONTH
     Route: 042
     Dates: start: 202006
  2. METFORMIN [Concomitant]
     Active Substance: METFORMIN HYDROCHLORIDE
     Indication: DIABETES MELLITUS
     Dosage: HAL A DOSE
     Dates: start: 201911

REACTIONS (14)
  - Pneumonia bacterial [Recovering/Resolving]
  - Malignant neoplasm progression [Unknown]
  - Dry skin [Unknown]
  - Hypothyroidism [Unknown]
  - Gait disturbance [Unknown]
  - Dysstasia [Recovering/Resolving]
  - Feeling abnormal [Unknown]
  - Toxicity to various agents [Recovering/Resolving]
  - Dyspnoea [Unknown]
  - Cardiac disorder [Unknown]
  - Obstructive airways disorder [Unknown]
  - Asthenia [Unknown]
  - Inappropriate schedule of product administration [Unknown]
  - Feeding disorder [Recovering/Resolving]

NARRATIVE: CASE EVENT DATE: 2020
